FAERS Safety Report 5694172-9 (Version None)
Quarter: 2008Q2

REPORT INFORMATION
  Report Type: 
  Country: None (occurrence: None)
  Receive Date: 20080402
  Receipt Date: 20080320
  Transmission Date: 20081010
  Serious: Yes (Hospitalization)
  Sender: FDA-Public Use
  Company Number: E2090-00409-SPO-US

PATIENT
  Age: 4 Year
  Sex: Male
  Weight: 15 kg

DRUGS (5)
  1. ZONEGRAN [Suspect]
     Indication: CONVULSION
     Dosage: 75 MG IN AM, 100 MG IN PM, ORAL
     Route: 048
     Dates: start: 20070501
  2. LAMICTAL [Suspect]
     Dosage: 150 MG, 2 IN 1 D
  3. KEPPRA [Concomitant]
  4. ALBUTEROL [Concomitant]
  5. BECLOMETHASONE DIPROPIONATE [Concomitant]

REACTIONS (1)
  - THROMBOCYTOPENIA [None]
